FAERS Safety Report 8489545-5 (Version None)
Quarter: 2012Q3

REPORT INFORMATION
  Report Type: 
  Country: None (occurrence: None)
  Receive Date: 20120705
  Receipt Date: 20120628
  Transmission Date: 20120928
  Serious: Yes (Death)
  Sender: FDA-Public Use
  Company Number: GB-JNJFOC-20120700502

PATIENT
  Age: 74 Year
  Sex: Male
  Weight: 104 kg

DRUGS (1)
  1. REMICADE [Suspect]
     Indication: RHEUMATOID ARTHRITIS
     Route: 042
     Dates: start: 20031014, end: 20060615

REACTIONS (1)
  - PANCREATIC NEUROENDOCRINE TUMOUR METASTATIC [None]
